FAERS Safety Report 4319935-3 (Version None)
Quarter: 2004Q1

REPORT INFORMATION
  Report Type: 
  Country: None (occurrence: None)
  Receive Date: 20040316
  Receipt Date: 20040309
  Transmission Date: 20041129
  Serious: Yes (Disabling)
  Sender: FDA-Public Use
  Company Number: 200410771GDS

PATIENT
  Age: 69 Year
  Sex: Male

DRUGS (2)
  1. CIPROFLOXACIN [Suspect]
     Indication: POSTOPERATIVE INFECTION
     Dosage: 500 MG, BID, ORAL
     Route: 048
     Dates: start: 20030601, end: 20030610
  2. RAMIPRIL [Concomitant]

REACTIONS (2)
  - HIP SURGERY [None]
  - MUSCLE DISORDER [None]
